FAERS Safety Report 4910687-2 (Version None)
Quarter: 2006Q1

REPORT INFORMATION
  Report Type: 
  Country: None (occurrence: None)
  Receive Date: 20060214
  Receipt Date: 20060207
  Transmission Date: 20060701
  Serious: Yes (Death, Other)
  Sender: FDA-Public Use
  Company Number: PHEH2006US01831

PATIENT
  Age: 70 Year
  Sex: Male

DRUGS (13)
  1. PAMIDRONATE DISODIUM [Suspect]
     Indication: MULTIPLE MYELOMA
     Dosage: 90 MG, QMO
     Dates: start: 20020222, end: 20050705
  2. DEXAMETHASONE [Concomitant]
     Indication: MULTIPLE MYELOMA
     Dosage: 20-40MG 4DAY PULSES/3 PER MON
     Dates: start: 20020201, end: 20020601
  3. CYCLOPHOSPHAMIDE [Concomitant]
     Indication: MULTIPLE MYELOMA
     Dosage: 3000 MG/M2, ONCE/SINGLE
     Dates: start: 20021201, end: 20021201
  4. CYCLOPHOSPHAMIDE [Concomitant]
     Dosage: 100 MG, TIW
     Dates: start: 20041001, end: 20050301
  5. PREDNISONE [Concomitant]
     Indication: MULTIPLE MYELOMA
     Dosage: 100 MG, TIW
     Dates: start: 20041001, end: 20050301
  6. DARBEPOETIN ALFA [Concomitant]
     Indication: ANAEMIA
     Dosage: 200 MCG Q2WK
     Dates: start: 20050201, end: 20050201
  7. PROCRIT [Concomitant]
     Indication: MULTIPLE MYELOMA
     Dosage: 40000 UNITS/QWK
     Dates: start: 20020201, end: 20050101
  8. COLACE [Concomitant]
     Indication: CONSTIPATION
     Dosage: 100-300MG/DAY PRN
     Dates: start: 20020201, end: 20050901
  9. SENOKOT /USA/ [Concomitant]
     Indication: CONSTIPATION
     Dosage: 2 TABS PER DAY/PRN
     Dates: start: 20020201, end: 20050901
  10. PREVACID [Concomitant]
     Indication: PROPHYLAXIS
     Dosage: 15-30MG/DAY
     Dates: start: 20020201, end: 20050901
  11. RENAGEL [Concomitant]
     Indication: BLOOD PHOSPHORUS INCREASED
     Dosage: UNK, QD
     Dates: start: 20020201, end: 20050901
  12. NEPHRO-VITE [Concomitant]
     Indication: RENAL FAILURE
     Dosage: UNK, PRN
     Dates: start: 20020201, end: 20050801
  13. BACTRIM DS [Concomitant]
     Indication: PROPHYLAXIS
     Dosage: 1 TAB TIW
     Dates: start: 20020201, end: 20050901

REACTIONS (6)
  - DEEP VEIN THROMBOSIS [None]
  - HYPERGLYCAEMIA [None]
  - IMPAIRED HEALING [None]
  - MALIGNANT NEOPLASM PROGRESSION [None]
  - OSTEONECROSIS [None]
  - TOOTH EXTRACTION [None]
